FAERS Safety Report 20430088 (Version 1)
Quarter: 2022Q1

REPORT INFORMATION
  Report Type: Report from Study
  Country: FR (occurrence: FR)
  Receive Date: 20220204
  Receipt Date: 20220204
  Transmission Date: 20220423
  Serious: Yes (Hospitalization, Other)
  Sender: FDA-Public Use
  Company Number: FR-SERVIER-S20002100

PATIENT

DRUGS (15)
  1. PEGASPARGASE [Suspect]
     Active Substance: PEGASPARGASE
     Indication: Acute lymphocytic leukaemia
     Dosage: 3430 IU
     Route: 042
     Dates: start: 20190923, end: 20190923
  2. PEGASPARGASE [Suspect]
     Active Substance: PEGASPARGASE
     Dosage: 3330 IU
     Route: 042
     Dates: start: 20190923, end: 20191203
  3. TN UNSPECIFIED [Concomitant]
     Indication: Acute lymphocytic leukaemia
     Dosage: 2 MG, (DAY 1, DAY 8)
     Route: 042
     Dates: start: 20190923, end: 20190929
  4. TN UNSPECIFIED [Concomitant]
     Dosage: 2 MG, DAY 1 AND DAY 8
     Route: 042
     Dates: start: 20190930, end: 20190930
  5. TN UNSPECIFIED [Concomitant]
     Indication: Acute lymphocytic leukaemia
     Dosage: 14 MG, DAY 1 DAY 7
     Route: 048
     Dates: start: 20190923, end: 20191203
  6. ADRIAMYCIN [Concomitant]
     Active Substance: DOXORUBICIN HYDROCHLORIDE
     Indication: Acute lymphocytic leukaemia
     Dosage: 34 MG (DAY 1, DAY 8)
     Route: 042
     Dates: start: 20190923, end: 20191203
  7. TN UNSPECIFIED [Concomitant]
     Indication: Acute lymphocytic leukaemia
     Dosage: 15 MG, DAY 4
     Route: 037
     Dates: start: 20190923, end: 20191203
  8. TN UNSPECIFIED [Concomitant]
     Indication: Acute lymphocytic leukaemia
     Dosage: 30 MG, DAY 4
     Route: 037
     Dates: start: 20190923, end: 20191203
  9. TN UNSPECIFIED [Concomitant]
     Dosage: 100 MG
     Route: 042
     Dates: start: 20191114, end: 20191124
  10. TN UNSPECIFIED [Concomitant]
     Indication: Acute lymphocytic leukaemia
     Dosage: 15 MG, DAY 4
     Route: 037
     Dates: start: 20190923, end: 20191203
  11. TN UNSPECIFIED [Concomitant]
     Indication: Antiviral treatment
     Dosage: 1 G, QD
     Route: 048
     Dates: start: 20190710
  12. TN UNSPECIFIED [Concomitant]
     Indication: Gastritis prophylaxis
     Dosage: 20 MG, QD
     Route: 048
     Dates: start: 20190910
  13. COTRIMOXAZOLE [Concomitant]
     Active Substance: SULFAMETHOXAZOLE\TRIMETHOPRIM
     Indication: Antibiotic therapy
     Dosage: 400 MG, QD
     Route: 048
     Dates: start: 20190910
  14. TN UNSPECIFIED [Concomitant]
     Indication: Acute lymphocytic leukaemia
     Dosage: 13.5 MG
     Route: 048
     Dates: start: 20190923, end: 20191203
  15. TN UNSPECIFIED [Concomitant]
     Indication: Acute lymphocytic leukaemia
     Dosage: 1.3 MG
     Route: 042
     Dates: start: 20190923, end: 20191203

REACTIONS (3)
  - Hypertriglyceridaemia [Recovered/Resolved]
  - Hypertriglyceridaemia [Recovered/Resolved]
  - Gamma-glutamyltransferase increased [Recovered/Resolved]

NARRATIVE: CASE EVENT DATE: 20191004
